FAERS Safety Report 9826308 (Version 1)
Quarter: 2014Q1

REPORT INFORMATION
  Report Type: Spontaneous
  Country: US (occurrence: US)
  Receive Date: 20140117
  Receipt Date: 20140117
  Transmission Date: 20141002
  Serious: No
  Sender: FDA-Public Use
  Company Number: US-BIOGENIDEC-2014BI001307

PATIENT
  Sex: Female

DRUGS (5)
  1. TECFIDERA [Suspect]
     Indication: MULTIPLE SCLEROSIS
     Route: 048
  2. AMLODIPINE BESY-BENAZEPRIL HCL [Concomitant]
  3. GABAPENTIN [Concomitant]
  4. PRAVASTATIN SODIUM [Concomitant]
  5. TRIAMTERENE-HCTZ [Concomitant]

REACTIONS (2)
  - Dizziness [Unknown]
  - Adverse event [Unknown]
